FAERS Safety Report 25456194 (Version 3)
Quarter: 2025Q3

REPORT INFORMATION
  Report Type: Report from Study
  Country: CN (occurrence: CN)
  Receive Date: 20250619
  Receipt Date: 20250715
  Transmission Date: 20251021
  Serious: Yes (Hospitalization)
  Sender: EISAI
  Company Number: CN-Eisai-EC-2025-191050

PATIENT
  Age: 68 Year
  Sex: Male
  Weight: 66 kg

DRUGS (14)
  1. LENVATINIB [Suspect]
     Active Substance: LENVATINIB
     Indication: Hepatocellular carcinoma
     Dates: start: 20230510, end: 20230515
  2. LENVATINIB [Suspect]
     Active Substance: LENVATINIB
     Dates: start: 20230520, end: 20230606
  3. LENVATINIB [Suspect]
     Active Substance: LENVATINIB
     Dates: start: 20230607, end: 20230616
  4. LENVATINIB [Suspect]
     Active Substance: LENVATINIB
     Dates: start: 20230927, end: 20231019
  5. LENVATINIB [Suspect]
     Active Substance: LENVATINIB
     Dates: start: 20231025, end: 20231224
  6. LENVATINIB [Suspect]
     Active Substance: LENVATINIB
     Dates: start: 20231229, end: 20250416
  7. LENVATINIB [Suspect]
     Active Substance: LENVATINIB
     Dates: start: 20250510, end: 20250610
  8. DURVALUMAB [Suspect]
     Active Substance: DURVALUMAB
     Indication: Hepatocellular carcinoma
     Dates: start: 20230510, end: 20230510
  9. DURVALUMAB [Suspect]
     Active Substance: DURVALUMAB
     Dates: start: 20230606, end: 20250611
  10. TREMELIMUMAB [Suspect]
     Active Substance: TREMELIMUMAB
     Indication: Hepatocellular carcinoma
     Dates: start: 20230510, end: 20230510
  11. GLICLAZIDE [Concomitant]
     Active Substance: GLICLAZIDE
     Dates: start: 2016, end: 20230627
  12. TENOFOVIR ALAFENAMIDE FUMARATE [Concomitant]
     Active Substance: TENOFOVIR ALAFENAMIDE FUMARATE
  13. INSULIN NOS [Concomitant]
     Active Substance: INSULIN NOS
  14. LEVOTHYROXINE SODIUM [Concomitant]
     Active Substance: LEVOTHYROXINE SODIUM

REACTIONS (1)
  - Cerebral infarction [Not Recovered/Not Resolved]

NARRATIVE: CASE EVENT DATE: 20250518
